FAERS Safety Report 7989082 (Version 6)
Quarter: 2015Q1

REPORT INFORMATION
  Report Type: Report from Study
  Country: US (occurrence: US)
  Receive Date: 20110614
  Receipt Date: 20150305
  Transmission Date: 20150721
  Serious: Yes (Hospitalization)
  Sender: FDA-Public Use
  Company Number: US-BIOGENIDEC-2011BI020580

PATIENT
  Age: 48 Year
  Sex: Female

DRUGS (1)
  1. TYSABRI [Suspect]
     Active Substance: NATALIZUMAB
     Indication: MULTIPLE SCLEROSIS
     Route: 042
     Dates: start: 20060818

REACTIONS (25)
  - Memory impairment [Not Recovered/Not Resolved]
  - Fall [Recovered/Resolved]
  - Multiple sclerosis relapse [Recovered/Resolved]
  - Asthenia [Not Recovered/Not Resolved]
  - Dysphemia [Unknown]
  - Pain [Unknown]
  - Cognitive disorder [Unknown]
  - Blood pressure fluctuation [Unknown]
  - Uterine neoplasm [Not Recovered/Not Resolved]
  - Dysarthria [Unknown]
  - Gait disturbance [Unknown]
  - Panic reaction [Unknown]
  - Appendicectomy [Recovered/Resolved]
  - Bacterial infection [Recovered/Resolved]
  - Abdominal pain [Unknown]
  - Balance disorder [Not Recovered/Not Resolved]
  - Ovarian cyst [Not Recovered/Not Resolved]
  - Pyrexia [Recovered/Resolved]
  - Benign ovarian tumour [Recovered/Resolved]
  - Thrombosis [Recovered/Resolved]
  - Neuropathy peripheral [Unknown]
  - Depression [Unknown]
  - Musculoskeletal stiffness [Unknown]
  - Stress [Unknown]
  - Multiple sclerosis [Not Recovered/Not Resolved]

NARRATIVE: CASE EVENT DATE: 2011
